FAERS Safety Report 9437337 (Version 1)
Quarter: 2013Q3

REPORT INFORMATION
  Report Type: Spontaneous
  Country: US (occurrence: None)
  Receive Date: 20130731
  Receipt Date: 20130731
  Transmission Date: 20140515
  Serious: Yes (Other)
  Sender: FDA-Public Use
  Company Number: 2013P1013212

PATIENT
  Sex: Female

DRUGS (1)
  1. GLYBURIDE [Suspect]
     Indication: GESTATIONAL DIABETES
     Route: 048

REACTIONS (3)
  - Pre-eclampsia [None]
  - Maternal exposure during pregnancy [None]
  - Foetal death [None]
